FAERS Safety Report 10625209 (Version 1)
Quarter: 2014Q4

REPORT INFORMATION
  Report Type: Spontaneous
  Country: IE (occurrence: IE)
  Receive Date: 20141204
  Receipt Date: 20141204
  Transmission Date: 20150529
  Serious: Yes (Other)
  Sender: FDA-Public Use
  Company Number: PHFR2014IE008197

PATIENT
  Age: 55 Year
  Sex: Female

DRUGS (1)
  1. CLOZARIL [Suspect]
     Active Substance: CLOZAPINE
     Indication: SCHIZOPHRENIA
     Dosage: UNK
     Route: 048
     Dates: start: 20140901, end: 20141128

REACTIONS (4)
  - Hypersensitivity [Unknown]
  - Rash generalised [Not Recovered/Not Resolved]
  - Swelling face [Unknown]
  - Joint swelling [Unknown]

NARRATIVE: CASE EVENT DATE: 20141124
